FAERS Safety Report 6215006-X (Version None)
Quarter: 2009Q2

REPORT INFORMATION
  Report Type: 
  Country: None (occurrence: None)
  Receive Date: 20090604
  Receipt Date: 20080630
  Transmission Date: 20091009
  Serious: No
  Sender: FDA-Public Use
  Company Number: US-ASTRAZENECA-2008UW13135

PATIENT
  Sex: Female

DRUGS (2)
  1. PRILOSEC [Suspect]
     Route: 048
     Dates: start: 20080501
  2. NEXIUM [Suspect]
     Route: 048

REACTIONS (1)
  - OESOPHAGEAL ULCER HAEMORRHAGE [None]
